FAERS Safety Report 13514932 (Version 1)
Quarter: 2017Q2

REPORT INFORMATION
  Report Type: Spontaneous
  Country: CA (occurrence: CA)
  Receive Date: 20170504
  Receipt Date: 20170504
  Transmission Date: 20170830
  Serious: Yes (Other)
  Sender: FDA-Public Use
  Company Number: CA-B.I. PHARMACEUTICALS,INC./RIDGEFIELD-2017-BI-024389

PATIENT
  Age: 66 Year
  Sex: Male
  Weight: 86.18 kg

DRUGS (1)
  1. JARDIANCE [Suspect]
     Active Substance: EMPAGLIFLOZIN
     Indication: DIABETES MELLITUS
     Route: 048

REACTIONS (6)
  - Nocturia [Unknown]
  - Poor quality sleep [Unknown]
  - Fall [Unknown]
  - Micturition urgency [Unknown]
  - Loss of personal independence in daily activities [Unknown]
  - Bladder irritation [Unknown]
